FAERS Safety Report 4410652-8 (Version None)
Quarter: 2004Q3

REPORT INFORMATION
  Report Type: 
  Country: None (occurrence: None)
  Receive Date: 20040726
  Receipt Date: 20040713
  Transmission Date: 20050211
  Serious: Yes (Hospitalization)
  Sender: FDA-Public Use
  Company Number: 04P-167-0266868-00

PATIENT
  Age: 38 Year
  Sex: Female

DRUGS (3)
  1. HUMIRA [Suspect]
     Indication: RHEUMATOID ARTHRITIS
     Dosage: 40 MG, 1 IN 2 WK, SUBCUTANEOUS
     Route: 058
     Dates: start: 20040301, end: 20040701
  2. METHOTREXATE [Concomitant]
  3. PARACETAMOL [Concomitant]

REACTIONS (10)
  - FACE OEDEMA [None]
  - HOARSENESS [None]
  - INFECTION [None]
  - INFECTIOUS MONONUCLEOSIS [None]
  - LYMPHADENOPATHY [None]
  - LYMPHOMA [None]
  - MOUTH ULCERATION [None]
  - NASAL DISORDER [None]
  - PHARYNGOLARYNGEAL PAIN [None]
  - UNEVALUABLE EVENT [None]
